FAERS Safety Report 6176880-9 (Version None)
Quarter: 2009Q2

REPORT INFORMATION
  Report Type: 
  Country: None (occurrence: None)
  Receive Date: 20090501
  Receipt Date: 20090422
  Transmission Date: 20091009
  Serious: Yes (Hospitalization)
  Sender: FDA-Public Use
  Company Number: US-B.I. PHARMACEUTICALS,INC./RIDGEFIELD-2009-BP-02228BP

PATIENT
  Age: 85 Year
  Sex: Female
  Weight: 58 kg

DRUGS (9)
  1. MIRAPEX [Suspect]
     Indication: PARKINSON'S DISEASE
     Route: 048
     Dates: start: 20030101, end: 20080601
  2. MIRAPEX [Suspect]
     Indication: TREMOR
  3. ALENDRONATE [Concomitant]
     Route: 048
  4. AMANTADINE HCL [Concomitant]
     Dosage: 100MG
     Route: 048
  5. CARBIDOPA AND LEVODOPA [Concomitant]
     Indication: TREMOR
     Route: 048
  6. LISINOPRIL [Concomitant]
     Indication: BLOOD PRESSURE
     Dosage: 10MG
     Route: 048
  7. SELEGILINE HCL [Concomitant]
     Dosage: 10MG
     Route: 048
  8. TRIAMCINOLONE [Concomitant]
     Route: 061
  9. FERROUS SULFATE TAB [Concomitant]
     Dosage: 325MG
     Route: 048

REACTIONS (5)
  - CONFUSIONAL STATE [None]
  - GENERAL PHYSICAL HEALTH DETERIORATION [None]
  - HALLUCINATION [None]
  - INSOMNIA [None]
  - WEIGHT DECREASED [None]
